FAERS Safety Report 8548851-6 (Version None)
Quarter: 2012Q3

REPORT INFORMATION
  Report Type: 
  Country: None (occurrence: None)
  Receive Date: 20120730
  Receipt Date: 20120721
  Transmission Date: 20120928
  Serious: Yes (Other)
  Sender: FDA-Public Use
  Company Number: US-US-EMD SERONO, INC.-7149441

PATIENT
  Sex: Female

DRUGS (3)
  1. KLONOPIN [Concomitant]
     Indication: PRODUCT USED FOR UNKNOWN INDICATION
  2. REBIF [Suspect]
     Indication: MULTIPLE SCLEROSIS
     Route: 058
     Dates: start: 20070307, end: 20111101
  3. REBIF [Suspect]
     Route: 058
     Dates: start: 20120101

REACTIONS (3)
  - SYSTEMIC LUPUS ERYTHEMATOSUS [None]
  - DRUG WITHDRAWAL CONVULSIONS [None]
  - ANTIPHOSPHOLIPID SYNDROME [None]
